FAERS Safety Report 7680477-9 (Version None)
Quarter: 2011Q3

REPORT INFORMATION
  Report Type: 
  Country: None (occurrence: None)
  Receive Date: 20110812
  Receipt Date: 20110801
  Transmission Date: 20111222
  Serious: Yes (Hospitalization, Other)
  Sender: FDA-Public Use
  Company Number: US-JNJFOC-20080906892

PATIENT
  Sex: Female
  Weight: 47 kg

DRUGS (5)
  1. REMICADE [Suspect]
     Route: 042
     Dates: start: 20080722
  2. REMICADE [Suspect]
     Dosage: TOTAL 6 DOSES
     Route: 042
     Dates: start: 20080707
  3. PREDNISONE [Concomitant]
  4. MEFOXIN [Concomitant]
     Dosage: FOR 24 HOURS
  5. REMICADE [Suspect]
     Indication: COLITIS ULCERATIVE
     Route: 042
     Dates: start: 20080131

REACTIONS (1)
  - INTESTINAL RESECTION [None]
